FAERS Safety Report 24366528 (Version 1)
Quarter: 2024Q3

REPORT INFORMATION
  Report Type: Report from Study
  Country: US (occurrence: US)
  Receive Date: 20240926
  Receipt Date: 20240926
  Transmission Date: 20241017
  Serious: Yes (Other)
  Sender: TEVA
  Company Number: US-TEVA-VS-3246061

PATIENT
  Sex: Female

DRUGS (3)
  1. MYCOPHENOLATE MOFETIL [Suspect]
     Active Substance: MYCOPHENOLATE MOFETIL
     Indication: Acquired haemophilia
     Route: 065
  2. SUSOCTOCOG ALFA [Concomitant]
     Active Substance: SUSOCTOCOG ALFA
     Indication: Acquired haemophilia
     Route: 065
  3. RITUXIMAB [Suspect]
     Active Substance: RITUXIMAB
     Indication: Acquired haemophilia
     Route: 065

REACTIONS (1)
  - Deep vein thrombosis [Recovered/Resolved]
